FAERS Safety Report 9815736 (Version 1)
Quarter: 2014Q1

REPORT INFORMATION
  Report Type: Spontaneous
  Country: SG (occurrence: None)
  Receive Date: 20140110
  Receipt Date: 20140110
  Transmission Date: 20141002
  Serious: Yes (Other)
  Sender: FDA-Public Use
  Company Number: 2013P1022409

PATIENT
  Age: 69 Year
  Sex: Female

DRUGS (3)
  1. METRONIDAZOLE [Suspect]
     Indication: POSTOPERATIVE CARE
     Dosage: 500 MG; X1; IV
     Route: 042
     Dates: start: 201009, end: 201009
  2. METRONIDAZOLE [Suspect]
     Indication: PROPHYLAXIS
     Dosage: 500 MG; X1; IV
     Route: 042
     Dates: start: 201009, end: 201009
  3. CIPROFLOXACIN [Concomitant]

REACTIONS (1)
  - Anaphylactic reaction [None]
